FAERS Safety Report 16860173 (Version 1)
Quarter: 2019Q4

REPORT INFORMATION
  Report Type: Spontaneous
  Country: US (occurrence: US)
  Receive Date: 20190927
  Receipt Date: 20190927
  Transmission Date: 20200122
  Serious: Yes (Hospitalization)
  Sender: FDA-Public Use
  Company Number: None

PATIENT
  Age: 90 Year
  Sex: Male
  Weight: 90.52 kg

DRUGS (17)
  1. FUROSEMIDE 40 MG [Concomitant]
     Active Substance: FUROSEMIDE
  2. ALLOPURINOL 100 MG [Concomitant]
     Active Substance: ALLOPURINOL
  3. METOPROLOL SUCCINATE 25 MG [Concomitant]
     Active Substance: METOPROLOL SUCCINATE
  4. TAMSULOSIN 0.4 MG [Concomitant]
     Active Substance: TAMSULOSIN
  5. FERROUS SULFATE 325 MG [Concomitant]
  6. SIMVASTATIN 10 MG [Concomitant]
     Active Substance: SIMVASTATIN
  7. KEYTRUDA [Suspect]
     Active Substance: PEMBROLIZUMAB
     Indication: METASTATIC MALIGNANT MELANOMA
     Dosage: ?          OTHER FREQUENCY:EVERY 3 WEEKS;?
     Route: 042
     Dates: end: 20190922
  8. CLOPIDOGREL [Concomitant]
     Active Substance: CLOPIDOGREL BISULFATE
  9. XANAX [Concomitant]
     Active Substance: ALPRAZOLAM
  10. OMEPRAZOLE 20 MG [Concomitant]
     Active Substance: OMEPRAZOLE
  11. AVODART [Concomitant]
     Active Substance: DUTASTERIDE
  12. TRAMADOL 100 MG [Concomitant]
     Active Substance: TRAMADOL
  13. FAMOTIDINE 20 MG [Concomitant]
     Active Substance: FAMOTIDINE
  14. DOCUSATE 100 MG [Concomitant]
  15. POLYETHYLENE GLYCOL 3350. [Concomitant]
     Active Substance: POLYETHYLENE GLYCOL 3350
  16. LOSARTAN POTASSIUM 100 MG [Concomitant]
     Active Substance: LOSARTAN POTASSIUM
  17. COMPAZINE 10 MG [Concomitant]

REACTIONS (1)
  - Musculoskeletal pain [None]

NARRATIVE: CASE EVENT DATE: 20190922
